FAERS Safety Report 9671745 (Version 1)
Quarter: 2013Q4

REPORT INFORMATION
  Report Type: Spontaneous
  Country: US (occurrence: None)
  Receive Date: 20131105
  Receipt Date: 20131105
  Transmission Date: 20140711
  Serious: Yes (Life-Threatening)
  Sender: FDA-Public Use
  Company Number: None

PATIENT
  Age: 49 Year
  Sex: Male
  Weight: 113.9 kg

DRUGS (1)
  1. CERTOLIZUMAB [Suspect]
     Indication: CROHN^S DISEASE
     Dosage: 400 MG, OTHER, SQ
     Dates: start: 20111107, end: 20130622

REACTIONS (3)
  - Crohn^s disease [None]
  - Gallbladder cancer stage III [None]
  - Lymphadenectomy [None]
